FAERS Safety Report 8067337-9 (Version None)
Quarter: 2012Q1

REPORT INFORMATION
  Report Type: 
  Country: None (occurrence: None)
  Receive Date: 20120124
  Receipt Date: 20120116
  Transmission Date: 20120608
  Serious: Yes (Hospitalization)
  Sender: FDA-Public Use
  Company Number: JP-GLAXOSMITHKLINE-B0776513A

PATIENT
  Sex: Female
  Weight: 47 kg

DRUGS (6)
  1. TYKERB [Suspect]
     Dosage: 1250MG PER DAY
     Route: 048
     Dates: start: 20100603, end: 20100728
  2. XELODA [Suspect]
     Indication: BREAST CANCER
     Dosage: 3000MG PER DAY
     Route: 048
     Dates: start: 20090717, end: 20091224
  3. XELODA [Suspect]
     Dosage: 2400MG PER DAY
     Route: 048
     Dates: start: 20100603, end: 20100728
  4. XELODA [Suspect]
     Dosage: 2400MG PER DAY
     Route: 048
     Dates: start: 20091225, end: 20100512
  5. TYKERB [Suspect]
     Indication: BREAST CANCER
     Dosage: 1250MG PER DAY
     Route: 048
     Dates: start: 20090717, end: 20100512
  6. ISOSORBIDE DINITRATE [Suspect]
     Indication: DIZZINESS
     Route: 048
     Dates: start: 20100331

REACTIONS (2)
  - DIARRHOEA [None]
  - GASTROENTERITIS [None]
